FAERS Safety Report 25503176 (Version 1)
Quarter: 2025Q3

REPORT INFORMATION
  Report Type: Spontaneous
  Country: CN (occurrence: CN)
  Receive Date: 20250702
  Receipt Date: 20250702
  Transmission Date: 20251021
  Serious: Yes (Other)
  Sender: BAXTER
  Company Number: None

PATIENT
  Age: 18 Year
  Sex: Female
  Weight: 58 kg

DRUGS (4)
  1. CYCLOPHOSPHAMIDE [Suspect]
     Active Substance: CYCLOPHOSPHAMIDE
     Indication: Haemophagocytic lymphohistiocytosis
     Dosage: 0.6 G, QD (INJECTION IN PUMP)
     Route: 065
     Dates: start: 20250529, end: 20250529
  2. SODIUM CHLORIDE [Suspect]
     Active Substance: SODIUM CHLORIDE
     Dosage: 500 ML, QD, INJECTION IN PUMP (CYCLOPHOSPHAMIDE + 0.9% NS))
     Route: 065
     Dates: start: 20250529, end: 20250529
  3. SODIUM CHLORIDE [Suspect]
     Active Substance: SODIUM CHLORIDE
     Dosage: 250 ML, QD, INJECTION IN PUMP (ETOPOSIDE + 0.9% NS)
     Route: 065
     Dates: start: 20250530, end: 20250530
  4. ETOPOSIDE [Suspect]
     Active Substance: ETOPOSIDE
     Indication: Haemophagocytic lymphohistiocytosis
     Dosage: 0.1 G, QD (INJECTION IN PUMP)
     Route: 065
     Dates: start: 20250530, end: 20250530

REACTIONS (2)
  - Myelosuppression [Recovering/Resolving]
  - Cytopenia [Unknown]

NARRATIVE: CASE EVENT DATE: 20250603
